FAERS Safety Report 15386834 (Version 1)
Quarter: 2018Q3

REPORT INFORMATION
  Report Type: Spontaneous
  Country: US (occurrence: US)
  Receive Date: 20180914
  Receipt Date: 20180914
  Transmission Date: 20181010
  Serious: No
  Sender: FDA-Public Use
  Company Number: US-PFIZER INC-2018371240

PATIENT
  Age: 66 Year
  Sex: Female

DRUGS (1)
  1. METAXALONE. [Suspect]
     Active Substance: METAXALONE
     Dosage: UNK

REACTIONS (2)
  - Tinnitus [Unknown]
  - Drug hypersensitivity [Unknown]
